FAERS Safety Report 5212534-0 (Version None)
Quarter: 2007Q1

REPORT INFORMATION
  Report Type: 
  Country: None (occurrence: None)
  Receive Date: 20070118
  Receipt Date: 20070109
  Transmission Date: 20070707
  Serious: Yes (Hospitalization)
  Sender: FDA-Public Use
  Company Number: DE-MERCK-0608DEU00168

PATIENT
  Age: 49 Year
  Sex: Female
  Weight: 90 kg

DRUGS (10)
  1. PHENPROCOUMON [Suspect]
     Route: 048
     Dates: start: 20051001
  2. VYTORIN [Suspect]
     Indication: HYPERLIPIDAEMIA
     Route: 048
     Dates: start: 20051001, end: 20061027
  3. METFORMIN [Concomitant]
     Route: 048
  4. SPIRAPRIL HYDROCHLORIDE [Concomitant]
     Route: 048
  5. METOPROLOL TARTRATE [Concomitant]
     Route: 048
  6. ALLOPURINOL [Concomitant]
     Route: 048
  7. INSULIN HUMAN [Concomitant]
     Route: 030
  8. INSULIN HUMAN, ISOPHANE [Concomitant]
     Route: 058
  9. XIPAMIDE [Concomitant]
     Route: 048
  10. PHENPROCOUMON [Suspect]
     Route: 048
     Dates: start: 20051001

REACTIONS (4)
  - ANTICOAGULATION DRUG LEVEL BELOW THERAPEUTIC [None]
  - DRUG INTERACTION [None]
  - SEROMA [None]
  - THROMBOSIS [None]
